FAERS Safety Report 5079780-0 (Version None)
Quarter: 2006Q3

REPORT INFORMATION
  Report Type: 
  Country: None (occurrence: None)
  Receive Date: 20060808
  Receipt Date: 20060731
  Transmission Date: 20061208
  Serious: Yes (Hospitalization)
  Sender: FDA-Public Use
  Company Number: 2006RR-03126

PATIENT
  Age: 30 Year
  Sex: Female

DRUGS (3)
  1. FLUOXETINE [Suspect]
  2. DULOXETINE (DULOXETINE) [Suspect]
     Indication: DEPRESSION
  3. AZITHROMYCIN [Concomitant]

REACTIONS (8)
  - CHILLS [None]
  - COUGH [None]
  - DYSPNOEA [None]
  - EOSINOPHILIC PNEUMONIA ACUTE [None]
  - NAUSEA [None]
  - PYREXIA [None]
  - RESPIRATORY FAILURE [None]
  - SHOCK [None]
